FAERS Safety Report 8228307-0 (Version None)
Quarter: 2012Q1

REPORT INFORMATION
  Report Type: 
  Country: None (occurrence: None)
  Receive Date: 20120322
  Receipt Date: 20111003
  Transmission Date: 20120608
  Serious: Yes (Other)
  Sender: FDA-Public Use
  Company Number: US-BRISTOL-MYERS SQUIBB COMPANY-16125965

PATIENT

DRUGS (1)
  1. ERBITUX [Suspect]
     Dosage: 23RD INFUSION

REACTIONS (1)
  - INFUSION RELATED REACTION [None]
